FAERS Safety Report 19954198 (Version 12)
Quarter: 2022Q1

REPORT INFORMATION
  Report Type: Report from Study
  Country: JP (occurrence: JP)
  Receive Date: 20211014
  Receipt Date: 20220218
  Transmission Date: 20220423
  Serious: Yes (Other)
  Sender: FDA-Public Use
  Company Number: JP-RPC01-3103-1131002-20211011-0001SG

PATIENT
  Age: 45 Year
  Sex: Female
  Weight: 52 kg

DRUGS (32)
  1. OZANIMOD [Suspect]
     Active Substance: OZANIMOD
     Indication: Colitis
     Dosage: 1 CAPSULE X 1 X 1 DAYS
     Route: 048
     Dates: start: 20200703, end: 20200706
  2. OZANIMOD [Suspect]
     Active Substance: OZANIMOD
     Dosage: 2 CAPSULE X 1 X 1 DAYS
     Route: 048
     Dates: start: 20200707, end: 20200709
  3. OZANIMOD [Suspect]
     Active Substance: OZANIMOD
     Dosage: 1 CAPSULE X 1 X 1 DAYS
     Route: 048
     Dates: start: 20200710, end: 20200716
  4. OZANIMOD [Suspect]
     Active Substance: OZANIMOD
     Dosage: 1 CAPSULE X 1 X 1 DAYS
     Route: 048
     Dates: start: 20200717, end: 20200806
  5. OZANIMOD [Suspect]
     Active Substance: OZANIMOD
     Dosage: 1 CAPSULE X 1 X 1 DAYS
     Route: 048
     Dates: start: 20200807, end: 20200903
  6. OZANIMOD [Suspect]
     Active Substance: OZANIMOD
     Dosage: 1 CAPSULE X 1 X 1 DAYS
     Route: 048
     Dates: start: 20200904, end: 20200924
  7. OZANIMOD [Suspect]
     Active Substance: OZANIMOD
     Dosage: 1 CAPSULE X 1 X 1 DAYS
     Route: 048
     Dates: start: 20200925, end: 20201001
  8. OZANIMOD [Suspect]
     Active Substance: OZANIMOD
     Dosage: 1 CAPSULE X 1 X 1 DAYS
     Route: 048
     Dates: start: 20201002, end: 20201005
  9. OZANIMOD [Suspect]
     Active Substance: OZANIMOD
     Dosage: 2 CAPSULE X 1 X 1 DAYS
     Route: 048
     Dates: start: 20201006, end: 20201008
  10. OZANIMOD [Suspect]
     Active Substance: OZANIMOD
     Dosage: 1 CAPSULE X 1 X 1 DAYS
     Route: 048
     Dates: start: 20201009, end: 20201029
  11. OZANIMOD [Suspect]
     Active Substance: OZANIMOD
     Dosage: 1 CAPSULE X 1 X 1 DAYS
     Route: 048
     Dates: start: 20201030, end: 20201126
  12. OZANIMOD [Suspect]
     Active Substance: OZANIMOD
     Dosage: 1 CAPSULE X 1 X 1 DAYS
     Route: 048
     Dates: start: 20201127, end: 20201224
  13. OZANIMOD [Suspect]
     Active Substance: OZANIMOD
     Dosage: 1 CAPSULE X 1 X 1 DAYS
     Route: 048
     Dates: start: 20201225, end: 20210121
  14. OZANIMOD [Suspect]
     Active Substance: OZANIMOD
     Dosage: 1 CAPSULE X 1 X 1 DAYS
     Route: 048
     Dates: start: 20210122, end: 20210218
  15. OZANIMOD [Suspect]
     Active Substance: OZANIMOD
     Dosage: 1 CAPSULE X 1 X 1 DAYS
     Route: 048
     Dates: start: 20210219, end: 20210318
  16. OZANIMOD [Suspect]
     Active Substance: OZANIMOD
     Dosage: 1 CAPSULE X 1 X 1 DAYS
     Route: 048
     Dates: start: 20210319, end: 20210415
  17. OZANIMOD [Suspect]
     Active Substance: OZANIMOD
     Dosage: 1 CAPSULE X 1 X 1 DAYS
     Route: 048
     Dates: start: 20210416, end: 20210513
  18. OZANIMOD [Suspect]
     Active Substance: OZANIMOD
     Dosage: 1 CAPSULE X 1 X 1 DAYS
     Route: 048
     Dates: start: 20210514, end: 20210610
  19. OZANIMOD [Suspect]
     Active Substance: OZANIMOD
     Dosage: 1 CAPSULE X 1 X 1 DAYS
     Route: 048
     Dates: start: 20210611, end: 20210708
  20. OZANIMOD [Suspect]
     Active Substance: OZANIMOD
     Dosage: 1 CAPSULE X 1 X 1 DAYS
     Route: 048
     Dates: start: 20210709, end: 20210805
  21. OZANIMOD [Suspect]
     Active Substance: OZANIMOD
     Dosage: 1 CAPSULE X 1 X 1 DAYS
     Route: 048
     Dates: start: 20210806, end: 20210902
  22. OZANIMOD [Suspect]
     Active Substance: OZANIMOD
     Dosage: 1 CAPSULE X 1 X 1 DAYS
     Route: 048
     Dates: start: 20210903, end: 20210930
  23. OZANIMOD [Suspect]
     Active Substance: OZANIMOD
     Dosage: 1 CAPSULE X 1 X 1 DAYS
     Route: 048
     Dates: start: 20211001, end: 20211011
  24. EVE [Concomitant]
     Indication: Headache
     Dosage: 2 TABLET X PRN
     Route: 048
     Dates: start: 1990
  25. TERRA-CORTRIL OINTMENT [Concomitant]
     Indication: Pruritus genital
     Dosage: PROPER DOSE FINGERTIP UNIT X AD LIBITUM
     Route: 061
     Dates: start: 201912
  26. FLUMAZENIL [Concomitant]
     Active Substance: FLUMAZENIL
     Indication: Colonoscopy
     Dosage: 0.5 MG X ONCE
     Route: 042
     Dates: start: 20210928, end: 20210928
  27. LIDOCAINE [Concomitant]
     Active Substance: LIDOCAINE
     Indication: Colonoscopy
     Dosage: 15 ML X ONCE
     Route: 061
     Dates: start: 20210928, end: 20210928
  28. MIDAZOLAM [Concomitant]
     Active Substance: MIDAZOLAM
     Indication: Colonoscopy
     Dosage: 1.5 ML X ONCE
     Route: 042
     Dates: start: 20210928, end: 20210928
  29. MOVIPREP [Concomitant]
     Active Substance: ASCORBIC ACID\POLYETHYLENE GLYCOL 3350\POTASSIUM CHLORIDE\SODIUM ASCORBATE\SODIUM CHLORIDE\SODIUM SU
     Indication: Colonoscopy
     Dosage: 1 BAG X ONCE
     Route: 048
     Dates: start: 20210928, end: 20210928
  30. POTACOL R INJECTION [Concomitant]
     Indication: Colonoscopy
     Dosage: 500 ML X ONCE
     Route: 042
     Dates: start: 20210928, end: 20210928
  31. SODIUM CHLORIDE [Concomitant]
     Active Substance: SODIUM CHLORIDE
     Indication: Colonoscopy
     Dosage: 20 ML X ONCE
     Route: 042
     Dates: start: 20210928, end: 20210928
  32. SODIUM PICOSULFATE [Concomitant]
     Active Substance: SODIUM PICOSULFATE
     Indication: Colonoscopy
     Dosage: 10 ML X ONCE
     Route: 048
     Dates: start: 20210928, end: 20210928

REACTIONS (1)
  - Lymphoproliferative disorder [Not Recovered/Not Resolved]

NARRATIVE: CASE EVENT DATE: 20210928
